FAERS Safety Report 12686577 (Version 1)
Quarter: 2016Q3

REPORT INFORMATION
  Report Type: Spontaneous
  Country: FR (occurrence: FR)
  Receive Date: 20160825
  Receipt Date: 20160825
  Transmission Date: 20161109
  Serious: Yes (Other)
  Sender: FDA-Public Use
  Company Number: FR-PFIZER INC-2016389721

PATIENT
  Age: 60 Year
  Sex: Female

DRUGS (34)
  1. ARIXTRA [Suspect]
     Active Substance: FONDAPARINUX SODIUM
     Indication: PULMONARY EMBOLISM
     Dosage: 1 DF, 1X/DAY
     Route: 058
     Dates: start: 20160627, end: 20160704
  2. ZYVOXID [Concomitant]
     Active Substance: LINEZOLID
  3. IPRATROPIUM BROMIDE MONOHYDRATE [Concomitant]
     Active Substance: IPRATROPIUM BROMIDE
  4. LEVEMIR [Concomitant]
     Active Substance: INSULIN DETEMIR
  5. TARDYFERON [Concomitant]
     Active Substance: FERROUS SULFATE
  6. TOPALGIC [Concomitant]
     Active Substance: TRAMADOL
  7. UVEDOSE [Concomitant]
     Active Substance: CHOLECALCIFEROL
  8. BACTRIM [Concomitant]
     Active Substance: SULFAMETHOXAZOLE\TRIMETHOPRIM
  9. DOLIPRANE [Concomitant]
     Active Substance: ACETAMINOPHEN
  10. MAGNE B6 /00869101/ [Concomitant]
  11. TAHOR [Concomitant]
     Active Substance: ATORVASTATIN CALCIUM
  12. DIFFU-K [Concomitant]
     Active Substance: POTASSIUM CHLORIDE
  13. SERETIDE [Concomitant]
     Active Substance: FLUTICASONE PROPIONATE\SALMETEROL XINAFOATE
  14. SETOFILM [Concomitant]
     Active Substance: ONDANSETRON
  15. SPECIAFOLDINE [Concomitant]
     Active Substance: FOLIC ACID
  16. TEMESTA /00273201/ [Concomitant]
     Active Substance: LORAZEPAM
  17. DALACINE [Suspect]
     Active Substance: CLINDAMYCIN HYDROCHLORIDE
     Indication: OSTEITIS
     Dosage: 9 DF, 1X/DAY
     Route: 048
     Dates: start: 20160701, end: 20160704
  18. LEVOFLOXACIN. [Concomitant]
     Active Substance: LEVOFLOXACIN
  19. MONTELUKAST SODIUM. [Concomitant]
     Active Substance: MONTELUKAST SODIUM
  20. FUROSEMIDE. [Concomitant]
     Active Substance: FUROSEMIDE
  21. KARDEGIC [Concomitant]
     Active Substance: ASPIRIN LYSINE
  22. ESOMEPRAZOLE [Concomitant]
     Active Substance: ESOMEPRAZOLE
  23. LASILIX /00032601/ [Concomitant]
     Active Substance: FUROSEMIDE
  24. LEVOTHYROX [Concomitant]
     Active Substance: LEVOTHYROXINE
  25. OXYCONTIN [Suspect]
     Active Substance: OXYCODONE HYDROCHLORIDE
     Indication: GAIT DISTURBANCE
     Dosage: 40 MG, 1X/DAY
     Route: 048
     Dates: start: 20160620, end: 20160704
  26. DEDROGYL [Suspect]
     Active Substance: CALCIFEDIOL
     Indication: VITAMIN D DEFICIENCY
     Dosage: 5 GTT, 1X/DAY
     Route: 048
     Dates: start: 20160629, end: 20160703
  27. PRIMPERAN [Concomitant]
     Active Substance: METOCLOPRAMIDE HYDROCHLORIDE
  28. CLAMOXYL /00249601/ [Suspect]
     Active Substance: AMOXICILLIN
     Indication: OSTEITIS
     Dosage: 16 G, 1X/DAY
     Route: 048
     Dates: start: 20160701, end: 20160705
  29. OXYNORMORO [Suspect]
     Active Substance: OXYCODONE
     Indication: GAIT DISTURBANCE
     Dosage: UNK, AS NEEDED
     Route: 048
     Dates: start: 20160620, end: 20160704
  30. TIENAM [Concomitant]
     Active Substance: CILASTATIN SODIUM\IMIPENEM
  31. ARANESP [Concomitant]
     Active Substance: DARBEPOETIN ALFA
  32. CEFEPIME [Concomitant]
     Active Substance: CEFEPIME HYDROCHLORIDE
  33. NOVORAPID [Concomitant]
     Active Substance: INSULIN ASPART
  34. FRAGMINE [Concomitant]
     Active Substance: DALTEPARIN SODIUM

REACTIONS (3)
  - Generalised erythema [Recovered/Resolved]
  - Pruritus [Recovered/Resolved]
  - Eosinophilia [Recovered/Resolved]

NARRATIVE: CASE EVENT DATE: 20160704
